FAERS Safety Report 12623904 (Version 2)
Quarter: 2016Q3

REPORT INFORMATION
  Report Type: Spontaneous
  Country: US (occurrence: US)
  Receive Date: 20160804
  Receipt Date: 20160919
  Transmission Date: 20161109
  Serious: Yes (Other)
  Sender: FDA-Public Use
  Company Number: US-BAUSCH-BL-2016-018229

PATIENT
  Sex: Female

DRUGS (5)
  1. RELISTOR [Suspect]
     Active Substance: METHYLNALTREXONE BROMIDE
     Dosage: 12 MG/0.6 ML SINGLE-USE PRE-FILLED SYRINGES
     Route: 058
     Dates: start: 2016
  2. RELISTOR [Suspect]
     Active Substance: METHYLNALTREXONE BROMIDE
     Dosage: 12 MG/0.6 ML SINGLE-USE PRE-FILLED SYRINGES
     Route: 058
     Dates: start: 2016
  3. OXYCODONE [Concomitant]
     Active Substance: OXYCODONE
     Indication: PAIN
     Route: 048
  4. RELISTOR [Suspect]
     Active Substance: METHYLNALTREXONE BROMIDE
     Indication: CONSTIPATION
     Dosage: 12 MG/0.6 ML SINGLE-USE PRE-FILLED SYRINGES
     Route: 058
     Dates: start: 201602
  5. FENTANYL. [Concomitant]
     Active Substance: FENTANYL
     Indication: PAIN
     Route: 061

REACTIONS (3)
  - Discomfort [Recovered/Resolved]
  - Drug ineffective [Unknown]
  - Vaginal prolapse [Recovered/Resolved]

NARRATIVE: CASE EVENT DATE: 2016
